FAERS Safety Report 5909249-X (Version None)
Quarter: 2008Q4

REPORT INFORMATION
  Report Type: 
  Country: None (occurrence: None)
  Receive Date: 20081006
  Receipt Date: 20081001
  Transmission Date: 20090506
  Serious: Yes (Death, Other)
  Sender: FDA-Public Use
  Company Number: PHHY2008JP23266

PATIENT
  Age: 77 Year
  Sex: Male

DRUGS (2)
  1. LOPRESSOR [Suspect]
     Indication: CARDIAC FAILURE
     Dosage: 2.5 MG DAILY
     Route: 048
  2. LOPRESSOR [Suspect]
     Dosage: 15 MG DAILY
     Route: 048

REACTIONS (2)
  - MYOCARDIAL INFARCTION [None]
  - RESPIRATORY FAILURE [None]
